FAERS Safety Report 6682001-6 (Version None)
Quarter: 2010Q2

REPORT INFORMATION
  Report Type: 
  Country: None (occurrence: None)
  Receive Date: 20100414
  Receipt Date: 20100414
  Transmission Date: 20101027
  Serious: Yes (Life-Threatening, Hospitalization, Disabling, Other)
  Sender: FDA-Public Use
  Company Number: None

PATIENT
  Age: 56 Year
  Sex: Male
  Weight: 90.7194 kg

DRUGS (1)
  1. WAL-PHED 30MG WALGREENS [Suspect]
     Indication: NASAL CONGESTION
     Dosage: 2 TABLETS TWICE DAILY PO
     Route: 048
     Dates: start: 20081220, end: 20081227

REACTIONS (1)
  - HAEMORRHAGIC STROKE [None]
